FAERS Safety Report 9254755 (Version 2)
Quarter: 2013Q4

REPORT INFORMATION
  Report Type: Spontaneous
  Country: GB (occurrence: None)
  Receive Date: 20130422
  Receipt Date: 20131021
  Transmission Date: 20140711
  Serious: Yes (Hospitalization)
  Sender: FDA-Public Use
  Company Number: 2013000092

PATIENT
  Age: 53 Year
  Sex: Male
  Weight: 136 kg

DRUGS (8)
  1. ACEON [Suspect]
     Dosage: 8 MG QD
     Dates: start: 20121204
  2. ALLOPURINOL [Concomitant]
  3. BETNOVATE (BETAMETHASONE VALERATE) [Concomitant]
  4. CETIRIZINE (CETINIZINE) [Concomitant]
  5. CITALOPRAM (CITALOPRAM) [Concomitant]
  6. NAPROXEN (NAPROXEN) [Concomitant]
  7. PREDNISOLONE (PREDNISOLONE) [Concomitant]
  8. SIMVASTATIN (SIMVASTATIN) [Concomitant]

REACTIONS (1)
  - Glossitis [None]
